FAERS Safety Report 6194968-3 (Version None)
Quarter: 2009Q2

REPORT INFORMATION
  Report Type: 
  Country: None (occurrence: None)
  Receive Date: 20090515
  Receipt Date: 20090515
  Transmission Date: 20091009
  Serious: Yes (Life-Threatening, Disabling, Other)
  Sender: FDA-Public Use
  Company Number: None

PATIENT
  Age: 37 Year
  Sex: Female
  Weight: 62.1428 kg

DRUGS (2)
  1. OXCARBAZEPINE [Suspect]
     Indication: CONVULSION
     Dosage: 900MGS 2 DAILY; 300 MGS 1
     Dates: start: 20081218, end: 20090118
  2. OXCARBAZEPINE [Suspect]
     Indication: CONVULSION
     Dosage: 900MGS 2 DAILY; 300 MGS 1
     Dates: start: 20081218, end: 20090118

REACTIONS (2)
  - CONVULSION [None]
  - PRODUCT SUBSTITUTION ISSUE [None]
